FAERS Safety Report 7788084-4 (Version None)
Quarter: 2011Q3

REPORT INFORMATION
  Report Type: 
  Country: None (occurrence: None)
  Receive Date: 20110930
  Receipt Date: 20110920
  Transmission Date: 20111222
  Serious: Yes (Death, Hospitalization, Other)
  Sender: FDA-Public Use
  Company Number: CA-PAR PHARMACEUTICAL, INC-2011SCPR003246

PATIENT

DRUGS (25)
  1. QUETIAPINE [Suspect]
     Indication: PRODUCT USED FOR UNKNOWN INDICATION
     Dosage: 400 MG AT BEDTIME
     Route: 048
  2. ATORVASTATIN [Concomitant]
     Indication: PRODUCT USED FOR UNKNOWN INDICATION
     Dosage: 10 MG DAILY
     Route: 048
  3. PREDNISONE [Concomitant]
     Indication: PRODUCT USED FOR UNKNOWN INDICATION
     Dosage: 7.5 MG ONCE DAILY
     Route: 048
  4. BUDESONIDE [Concomitant]
     Indication: PRODUCT USED FOR UNKNOWN INDICATION
     Dosage: 2 INHALATIONS DAILY
  5. FUROSEMIDE [Concomitant]
     Indication: PRODUCT USED FOR UNKNOWN INDICATION
     Dosage: 40 MG DAILY
     Route: 048
  6. HYDROXYZINE [Concomitant]
     Indication: PRODUCT USED FOR UNKNOWN INDICATION
     Dosage: 25 MG TWICE DAILY
     Route: 048
  7. ALBUTEROL [Concomitant]
     Indication: PRODUCT USED FOR UNKNOWN INDICATION
     Dosage: 100 MCG AS NEEDED
     Route: 048
  8. HALOPERIDOL [Suspect]
     Indication: PRODUCT USED FOR UNKNOWN INDICATION
     Dosage: 20 MG AT BEDTIME
     Route: 048
  9. TRAZODONE HYDROCHLORIDE [Suspect]
     Indication: PRODUCT USED FOR UNKNOWN INDICATION
     Dosage: 200 MG AT BEDTIME
     Route: 048
  10. CYCLOPHOSPHAMIDE [Concomitant]
     Indication: PRODUCT USED FOR UNKNOWN INDICATION
     Dosage: 10 MG AS NEEDED
     Route: 048
  11. SUMATRIPTAN SUCCINATE [Concomitant]
     Indication: PRODUCT USED FOR UNKNOWN INDICATION
     Dosage: 50 MG AS NEEDED
     Route: 048
  12. CELECOXIB [Concomitant]
     Indication: PRODUCT USED FOR UNKNOWN INDICATION
     Dosage: 200 MG TWICE DAILY
     Route: 048
  13. LEVOTHYROXINE [Concomitant]
     Indication: PRODUCT USED FOR UNKNOWN INDICATION
     Dosage: 50 MCG DAILY
     Route: 048
  14. VENLAFAXINE HYDROCHLORIDE [Suspect]
     Indication: PRODUCT USED FOR UNKNOWN INDICATION
     Dosage: 75 MG TWICE DAILY
     Route: 048
  15. MOMETASONE FUROATE [Concomitant]
     Indication: PRODUCT USED FOR UNKNOWN INDICATION
     Dosage: 2 SPRAYS TWICE DAILY
     Route: 065
  16. FLUCONAZOLE [Concomitant]
     Indication: PRODUCT USED FOR UNKNOWN INDICATION
     Dosage: 150 MG X 1 (5-6 TIMES IN PAST 6 MO)
     Route: 048
  17. ALENDRONATE SODIUM [Concomitant]
     Indication: PRODUCT USED FOR UNKNOWN INDICATION
     Dosage: 70 MG WEEKLY
     Route: 048
  18. CONJUGATED ESTROGENS [Concomitant]
     Indication: PRODUCT USED FOR UNKNOWN INDICATION
     Dosage: 1.3 MG DAILY
     Route: 048
  19. HYDROXYCHLOROQUINE SULFATE [Concomitant]
     Indication: PRODUCT USED FOR UNKNOWN INDICATION
     Dosage: 200 MG TWICE DAILY
     Route: 048
  20. DESIPRAMINE HCL [Suspect]
     Indication: PRODUCT USED FOR UNKNOWN INDICATION
     Dosage: 25 MG TWICE DAILY
     Route: 048
  21. LORAZEPAM [Concomitant]
     Indication: PRODUCT USED FOR UNKNOWN INDICATION
     Dosage: 2 MG AT BEDTIME
     Route: 048
  22. LOPERAMIDE HCL [Concomitant]
     Indication: PRODUCT USED FOR UNKNOWN INDICATION
     Dosage: 2 MG (100 TABLETS/MO) AS NEEDED
     Route: 048
  23. OMEPRAZOLE [Concomitant]
     Indication: PRODUCT USED FOR UNKNOWN INDICATION
     Dosage: 20 MG TWICE DAILY
     Route: 048
  24. RISPERIDONE [Suspect]
     Indication: PRODUCT USED FOR UNKNOWN INDICATION
     Dosage: 2 MG IN THE MORNING AND 3 MG AT NIGHT
     Route: 048
  25. TRIMETHOPRIM + SULFAMETHOXAZOLE [Concomitant]
     Indication: PRODUCT USED FOR UNKNOWN INDICATION
     Dosage: 160/800 MCG DAILY FOR THE PAST 3 MONTHS
     Route: 048

REACTIONS (4)
  - DEATH [None]
  - SEROTONIN SYNDROME [None]
  - FALL [None]
  - NEUROLEPTIC MALIGNANT SYNDROME [None]
